FAERS Safety Report 7702318-3 (Version None)
Quarter: 2011Q3

REPORT INFORMATION
  Report Type: 
  Country: None (occurrence: None)
  Receive Date: 20110822
  Receipt Date: 20110810
  Transmission Date: 20111222
  Serious: Yes (Other)
  Sender: FDA-Public Use
  Company Number: PHHY2011PL73856

PATIENT
  Age: 25 Year
  Sex: Female

DRUGS (2)
  1. PREDNISONE [Suspect]
     Indication: DRUG THERAPY
     Dosage: 30 MG, UNK
  2. PREDNISONE [Suspect]
     Dosage: 1 MG/KG, UNK

REACTIONS (4)
  - DRUG INTOLERANCE [None]
  - PSYCHOTIC DISORDER [None]
  - HAEMOLYSIS [None]
  - ANAEMIA [None]
